FAERS Safety Report 6926570-7 (Version None)
Quarter: 2010Q3

REPORT INFORMATION
  Report Type: 
  Country: None (occurrence: None)
  Receive Date: 20100816
  Receipt Date: 20100521
  Transmission Date: 20110219
  Serious: No
  Sender: FDA-Public Use
  Company Number: US-ABBOTT-10P-163-0646433-00

PATIENT
  Sex: Male
  Weight: 78.542 kg

DRUGS (2)
  1. SIMCOR [Suspect]
     Indication: BLOOD CHOLESTEROL INCREASED
     Dosage: 500/20MG
     Dates: start: 20100520
  2. UNKNOWN MEDICATION [Concomitant]
     Indication: DYSPEPSIA

REACTIONS (1)
  - DYSPEPSIA [None]
